FAERS Safety Report 9619899 (Version 1)
Quarter: 2013Q4

REPORT INFORMATION
  Report Type: Spontaneous
  Country: US (occurrence: US)
  Receive Date: 20131014
  Receipt Date: 20131014
  Transmission Date: 20140711
  Serious: Yes (Other)
  Sender: FDA-Public Use
  Company Number: US-PFIZER INC-2013292699

PATIENT
  Age: 37 Year
  Sex: Female
  Weight: 81.63 kg

DRUGS (5)
  1. NEURONTIN [Suspect]
     Indication: MOOD ALTERED
     Dosage: 400 MG, 3X/DAY
     Route: 048
     Dates: end: 201308
  2. NEURONTIN [Suspect]
     Indication: SCIATICA
  3. NEURONTIN [Suspect]
     Indication: PAIN IN EXTREMITY
     Dosage: 600 MG, 3X/DAY
     Route: 048
     Dates: start: 2013
  4. PROZAC [Concomitant]
     Indication: DEPRESSION
     Dosage: UNK
  5. KLONOPIN [Concomitant]
     Dosage: UNK

REACTIONS (8)
  - Off label use [Unknown]
  - Drug withdrawal syndrome [Recovered/Resolved]
  - Depression [Recovered/Resolved]
  - Mood altered [Recovered/Resolved]
  - Mood swings [Recovered/Resolved]
  - Feeling jittery [Recovered/Resolved]
  - Pain in extremity [Recovered/Resolved]
  - Blood cholesterol increased [Unknown]
